FAERS Safety Report 5128227-4 (Version None)
Quarter: 2006Q4

REPORT INFORMATION
  Report Type: 
  Country: None (occurrence: None)
  Receive Date: 20061011
  Receipt Date: 20061004
  Transmission Date: 20070319
  Serious: Yes (Hospitalization)
  Sender: FDA-Public Use
  Company Number: B0437025A

PATIENT
  Sex: Male

DRUGS (5)
  1. LITHIUM CARBONATE [Suspect]
     Indication: BIPOLAR DISORDER
  2. CARBAMAZEPINE [Suspect]
     Indication: AFFECTIVE DISORDER
  3. VALPROIC ACID [Suspect]
     Indication: AFFECTIVE DISORDER
  4. CLOMIPRAMINE HCL [Suspect]
  5. NORTRIPTYLINE HCL [Suspect]

REACTIONS (13)
  - ACCIDENTAL DEATH [None]
  - ANTIDEPRESSANT DRUG LEVEL ABOVE THERAPEUTIC [None]
  - CONVULSION [None]
  - DELIRIUM [None]
  - DRUG INEFFECTIVE [None]
  - DRUG INTERACTION [None]
  - DRUG TOXICITY [None]
  - HAEMODIALYSIS [None]
  - HYPONATRAEMIA [None]
  - INAPPROPRIATE ANTIDIURETIC HORMONE SECRETION [None]
  - LOSS OF CONSCIOUSNESS [None]
  - MAJOR DEPRESSION [None]
  - NEPHROTIC SYNDROME [None]
